FAERS Safety Report 14164754 (Version 1)
Quarter: 2017Q4

REPORT INFORMATION
  Report Type: Spontaneous
  Country: US (occurrence: US)
  Receive Date: 20171107
  Receipt Date: 20171107
  Transmission Date: 20180321
  Serious: No
  Sender: FDA-Public Use
  Company Number: US-LUPIN PHARMACEUTICALS INC.-2017-04991

PATIENT
  Sex: Female

DRUGS (1)
  1. LISINOPRIL TABLETS USP, 40MG [Suspect]
     Active Substance: LISINOPRIL
     Indication: PRODUCT USED FOR UNKNOWN INDICATION
     Dosage: UNK, HALF OF 40 MG TABLETS
     Route: 065

REACTIONS (3)
  - Wrong technique in product usage process [Unknown]
  - Blood pressure abnormal [Recovering/Resolving]
  - Drug ineffective [Unknown]
